FAERS Safety Report 16916892 (Version 2)
Quarter: 2019Q4

REPORT INFORMATION
  Report Type: Report from Study
  Country: ES (occurrence: ES)
  Receive Date: 20191015
  Receipt Date: 20191210
  Transmission Date: 20200122
  Serious: Yes (Death, Hospitalization, Other)
  Sender: FDA-Public Use
  Company Number: ES-ROCHE-2405805

PATIENT
  Age: 83 Year
  Sex: Male
  Weight: 62 kg

DRUGS (10)
  1. QUETIAPINE. [Concomitant]
     Active Substance: QUETIAPINE
     Route: 048
     Dates: start: 20190829, end: 20190831
  2. DIAZEPAM. [Concomitant]
     Active Substance: DIAZEPAM
     Route: 050
     Dates: start: 20190829, end: 20190901
  3. QUETIAPINE. [Concomitant]
     Active Substance: QUETIAPINE
     Route: 048
     Dates: start: 20190831, end: 20190901
  4. CHLORPROMAZINE. [Concomitant]
     Active Substance: CHLORPROMAZINE
     Route: 042
     Dates: start: 20190831, end: 20190903
  5. ATEZOLIZUMAB. [Suspect]
     Active Substance: ATEZOLIZUMAB
     Indication: NON-SMALL CELL LUNG CANCER
     Dosage: DATE OF MOST RECENT DOSE PRIOR TO THE ONSET OF PNUEMONIA: 20/AUG/2019
     Route: 042
  6. MORPHINE [Concomitant]
     Active Substance: MORPHINE
     Route: 042
     Dates: start: 20190830, end: 20190903
  7. PANTOPRAZOLE [Concomitant]
     Active Substance: PANTOPRAZOLE
     Route: 042
     Dates: start: 20190901, end: 20190902
  8. PEMETREXED. [Suspect]
     Active Substance: PEMETREXED
     Indication: NON-SMALL CELL LUNG CANCER
     Dosage: DATE OF MOST RECENT DOSE PRIOR TO THE ONSET OF PNUEMONIA: 20/AUG/2019
     Route: 042
  9. DIAZEPAM. [Concomitant]
     Active Substance: DIAZEPAM
     Route: 060
     Dates: start: 20190901, end: 20190903
  10. CARBOPLATIN. [Suspect]
     Active Substance: CARBOPLATIN
     Indication: NON-SMALL CELL LUNG CANCER
     Dosage: DATE OF MOST RECENT DOSE PRIOR TO THE ONSET OF PNUEMONIA: 20/AUG/2019
     Route: 042

REACTIONS (2)
  - Pneumonia [Unknown]
  - Lung neoplasm malignant [Unknown]

NARRATIVE: CASE EVENT DATE: 20190826
